FAERS Safety Report 10035304 (Version 4)
Quarter: 2014Q2

REPORT INFORMATION
  Report Type: Spontaneous
  Country: US (occurrence: US)
  Receive Date: 20140325
  Receipt Date: 20140612
  Transmission Date: 20141212
  Serious: No
  Sender: FDA-Public Use
  Company Number: US-009507513-1403USA005892

PATIENT
  Age: 85 Year
  Sex: Female
  Weight: 79.37 kg

DRUGS (4)
  1. OXYTROL FOR WOMEN [Suspect]
     Indication: POLLAKIURIA
     Dosage: UNK, UNKNOWN
     Route: 062
     Dates: start: 20140207, end: 2014
  2. OXYTROL FOR WOMEN [Suspect]
     Dosage: UNK
     Route: 062
  3. LEVOTHYROXINE SODIUM [Concomitant]
     Indication: PRODUCT USED FOR UNKNOWN INDICATION
     Dosage: UNK, UNKNOWN
     Route: 048
  4. METFORMIN HYDROCHLORIDE [Concomitant]
     Indication: PRODUCT USED FOR UNKNOWN INDICATION
     Dosage: 2X PER DAY

REACTIONS (6)
  - Skin irritation [Unknown]
  - Application site erythema [Unknown]
  - Drug effect decreased [Unknown]
  - Off label use [Unknown]
  - Product adhesion issue [Unknown]
  - Product packaging issue [Unknown]
